FAERS Safety Report 7018255-6 (Version None)
Quarter: 2010Q3

REPORT INFORMATION
  Report Type: 
  Country: None (occurrence: None)
  Receive Date: 20100924
  Receipt Date: 20100913
  Transmission Date: 20110219
  Serious: Yes (Congenital Anomaly, Other)
  Sender: FDA-Public Use
  Company Number: 8047071

PATIENT
  Sex: Male
  Weight: 2.7 kg

DRUGS (4)
  1. KEPPRA [Suspect]
     Dosage: 2000 MG BID TRANSPLACENTAL
     Route: 064
     Dates: start: 20081116
  2. PRENATAL VITAMINS [Concomitant]
  3. FOLIC ACID [Concomitant]
  4. MUCINEX [Concomitant]

REACTIONS (4)
  - CEREBRAL DISORDER [None]
  - GROSS MOTOR DELAY [None]
  - MATERNAL DRUGS AFFECTING FOETUS [None]
  - ULTRASOUND ANTENATAL SCREEN ABNORMAL [None]
